FAERS Safety Report 20724411 (Version 1)
Quarter: 2022Q2

REPORT INFORMATION
  Report Type: Spontaneous
  Country: US (occurrence: None)
  Receive Date: 20220418
  Receipt Date: 20220418
  Transmission Date: 20220721
  Serious: Yes (Life-Threatening, Hospitalization)
  Sender: FDA-Public Use
  Company Number: None

PATIENT
  Age: 40 Year
  Sex: Female
  Weight: 45.36 kg

DRUGS (1)
  1. CARBAMAZEPINE [Suspect]
     Active Substance: CARBAMAZEPINE
     Indication: Temporal lobe epilepsy
     Dosage: FREQUENCY : EVERY 8 HOURS;?
     Route: 048

REACTIONS (4)
  - Urosepsis [None]
  - Status epilepticus [None]
  - Therapy interrupted [None]
  - Drug level below therapeutic [None]

NARRATIVE: CASE EVENT DATE: 20220415
